FAERS Safety Report 4968017-6 (Version None)
Quarter: 2006Q2

REPORT INFORMATION
  Report Type: 
  Country: None (occurrence: None)
  Receive Date: 20060404
  Receipt Date: 20060322
  Transmission Date: 20061013
  Serious: Yes (Other)
  Sender: FDA-Public Use
  Company Number: 223325

PATIENT
  Age: 80 Year
  Sex: Male

DRUGS (4)
  1. AVASTIN [Suspect]
     Indication: COLON CANCER
     Dosage: 500 MG, Q3W, INTRAVENOUS
     Route: 042
     Dates: start: 20040524, end: 20060213
  2. FLUOROURACIL [Concomitant]
  3. LEUCOVORIN CALCIUM [Concomitant]
  4. CPT-11 (IRINOTECAN HYDROCHLORIDE) [Concomitant]

REACTIONS (5)
  - CONCOMITANT DISEASE AGGRAVATED [None]
  - CONFUSIONAL STATE [None]
  - DEMENTIA [None]
  - MENTAL DISORDER DUE TO A GENERAL MEDICAL CONDITION [None]
  - PNEUMONIA [None]
